FAERS Safety Report 7994304-3 (Version None)
Quarter: 2011Q4

REPORT INFORMATION
  Report Type: 
  Country: None (occurrence: None)
  Receive Date: 20111217
  Receipt Date: 20111217
  Transmission Date: 20120403
  Serious: Yes (Disabling)
  Sender: FDA-Public Use
  Company Number: None

PATIENT
  Sex: Female
  Weight: 63.05 kg

DRUGS (3)
  1. ALL ANTI-CONVSENT MEDICIN [Suspect]
  2. SEE ATTACHED LETTER [Concomitant]
  3. DEPAKOTE [Suspect]
     Dates: start: 20010101, end: 20110101

REACTIONS (4)
  - COMPRESSION FRACTURE [None]
  - INTERVERTEBRAL DISC COMPRESSION [None]
  - OSTEOPOROSIS [None]
  - BONE LOSS [None]
